FAERS Safety Report 7531323-5 (Version None)
Quarter: 2011Q2

REPORT INFORMATION
  Report Type: 
  Country: None (occurrence: None)
  Receive Date: 20110606
  Receipt Date: 20110606
  Transmission Date: 20111010
  Serious: Yes (Other)
  Sender: FDA-Public Use
  Company Number: None

PATIENT
  Sex: Male
  Weight: 58.3326 kg

DRUGS (2)
  1. CIMZIA [Suspect]
     Indication: CROHN'S DISEASE
     Dosage: 400MG Q4WKS SUBQ
     Route: 058
     Dates: start: 20090402
  2. CIMZIA [Suspect]
     Indication: CROHN'S DISEASE
     Dosage: 400MG Q4WKS SUBQ
     Route: 058
     Dates: start: 20110501

REACTIONS (2)
  - URTICARIA [None]
  - TREATMENT NONCOMPLIANCE [None]
